FAERS Safety Report 25627756 (Version 4)
Quarter: 2025Q4

REPORT INFORMATION
  Report Type: Spontaneous
  Country: US (occurrence: US)
  Receive Date: 20250731
  Receipt Date: 20251114
  Transmission Date: 20260117
  Serious: Yes (Other)
  Sender: NOVARTIS
  Company Number: US-002147023-NVSC2025US119831

PATIENT
  Sex: Female

DRUGS (1)
  1. COSENTYX [Suspect]
     Active Substance: SECUKINUMAB
     Indication: Ankylosing spondylitis
     Dosage: 150 MILLIGRAM PER MILLILITRE (EVERY 28 DAYS)
     Route: 058
     Dates: start: 202505

REACTIONS (5)
  - Breast cancer [Unknown]
  - Device malfunction [Unknown]
  - Platelet count increased [Recovered/Resolved]
  - Complication of device insertion [Unknown]
  - Drug dose omission by device [Unknown]
